FAERS Safety Report 22902098 (Version 2)
Quarter: 2024Q1

REPORT INFORMATION
  Report Type: Spontaneous
  Country: US (occurrence: US)
  Receive Date: 20230904
  Receipt Date: 20240305
  Transmission Date: 20240410
  Serious: No
  Sender: FDA-Public Use
  Company Number: US-BIOGEN-2023BI01223632

PATIENT
  Sex: Female

DRUGS (1)
  1. VUMERITY [Suspect]
     Active Substance: DIROXIMEL FUMARATE
     Indication: Multiple sclerosis
     Route: 050
     Dates: start: 20221109, end: 20230511

REACTIONS (4)
  - Gastrointestinal disorder [Unknown]
  - Weight decreased [Unknown]
  - Blood test abnormal [Unknown]
  - Diarrhoea [Recovered/Resolved]
